FAERS Safety Report 7933342-3 (Version None)
Quarter: 2011Q4

REPORT INFORMATION
  Report Type: 
  Country: None (occurrence: None)
  Receive Date: 20111122
  Receipt Date: 20111118
  Transmission Date: 20120403
  Serious: Yes (Death)
  Sender: FDA-Public Use
  Company Number: PHHY2011GB85892

PATIENT
  Age: 72 Year
  Sex: Male

DRUGS (4)
  1. CLOPIDOGREL [Suspect]
     Indication: ANEURYSM
     Dosage: 75 MG, UNK
  2. HEPARIN [Suspect]
     Indication: THROMBOSIS PROPHYLAXIS
  3. ANTIHYPERTENSIVE DRUGS [Concomitant]
  4. ASPIRIN [Suspect]
     Indication: ANEURYSM
     Dosage: 75 MG, QD

REACTIONS (5)
  - UNRESPONSIVE TO STIMULI [None]
  - HEADACHE [None]
  - DYSARTHRIA [None]
  - BRAIN STEM HAEMORRHAGE [None]
  - CONFUSIONAL STATE [None]
